FAERS Safety Report 17540776 (Version 2)
Quarter: 2020Q1

REPORT INFORMATION
  Report Type: Report from Study
  Country: AU (occurrence: AU)
  Receive Date: 20200313
  Receipt Date: 20200326
  Transmission Date: 20200409
  Serious: Yes (Hospitalization, Other)
  Sender: FDA-Public Use
  Company Number: AU-TOLMAR, INC.-19AU000247

PATIENT
  Sex: Male

DRUGS (1)
  1. ELIGARD [Suspect]
     Active Substance: LEUPROLIDE ACETATE
     Indication: PROSTATE CANCER
     Dosage: 22.5 MILLIGRAM, Q3 MONTHS
     Route: 058
     Dates: start: 20190606

REACTIONS (6)
  - Exercise lack of [Unknown]
  - Cardiac disorder [Unknown]
  - Fall [Unknown]
  - Stoma closure [Unknown]
  - Cervical vertebral fracture [Unknown]
  - Weight increased [Unknown]
